FAERS Safety Report 17125210 (Version 1)
Quarter: 2019Q4

REPORT INFORMATION
  Report Type: Spontaneous
  Country: CN (occurrence: CN)
  Receive Date: 20191206
  Receipt Date: 20191206
  Transmission Date: 20200122
  Serious: Yes (Hospitalization)
  Sender: FDA-Public Use
  Company Number: CN-BAXTER-2019BAX024588

PATIENT
  Age: 1 Year
  Sex: Female
  Weight: 9.1 kg

DRUGS (13)
  1. ENDOXAN [Suspect]
     Active Substance: CYCLOPHOSPHAMIDE
     Indication: SARCOMA METASTATIC
     Dosage: CYCLOPHOSPHAMIDE 364.4 MG + 0.9% NS 55 ML
     Route: 041
     Dates: start: 20191121, end: 20191121
  2. ACTINOMYCIN D [Suspect]
     Active Substance: DACTINOMYCIN
     Indication: EMBRYONAL RHABDOMYOSARCOMA
     Dosage: ACTINOMYCIN D 0.22 MG + 0.9% NS 10 ML
     Route: 042
     Dates: start: 20191121, end: 20191121
  3. 0.9% SODIUM CHLORIDE INJECTION [Suspect]
     Active Substance: SODIUM CHLORIDE
     Indication: MEDICATION DILUTION
     Dosage: CYCLOPHOSPHAMIDE 364.4 MG + 0.9% NS 55 ML
     Route: 041
     Dates: start: 20191121, end: 20191121
  4. 0.9% SODIUM CHLORIDE INJECTION [Suspect]
     Active Substance: SODIUM CHLORIDE
     Dosage: VINCRISTINE SULFATE 0.22 MG + 0.9% NS 20 ML
     Route: 042
     Dates: start: 20191121, end: 20191121
  5. VINCRISTINE SULFATE. [Suspect]
     Active Substance: VINCRISTINE SULFATE
     Indication: EMBRYONAL RHABDOMYOSARCOMA
  6. MESNA. [Suspect]
     Active Substance: MESNA
     Indication: PROPHYLAXIS
     Dosage: MESNA 72.9 MG + 0.9% NS 10 ML
     Route: 042
     Dates: start: 20191121, end: 20191121
  7. ENDOXAN [Suspect]
     Active Substance: CYCLOPHOSPHAMIDE
     Indication: EMBRYONAL RHABDOMYOSARCOMA
  8. 0.9% SODIUM CHLORIDE INJECTION [Suspect]
     Active Substance: SODIUM CHLORIDE
     Dosage: ACTINOMYCIN D 0.22 MG + 0.9% NS 10 ML
     Route: 042
     Dates: start: 20191121, end: 20191121
  9. 0.9% SODIUM CHLORIDE INJECTION [Suspect]
     Active Substance: SODIUM CHLORIDE
     Dosage: MESNA 72.9 MG + 0.9%NS 10 ML
     Route: 042
     Dates: start: 20191121, end: 20191121
  10. ACTINOMYCIN D [Suspect]
     Active Substance: DACTINOMYCIN
     Indication: SARCOMA METASTATIC
  11. VINCRISTINE SULFATE. [Suspect]
     Active Substance: VINCRISTINE SULFATE
     Indication: SARCOMA METASTATIC
     Dosage: VINCRISTINE SULFATE 0.22 MG + 0.9% NS 20 ML
     Route: 042
     Dates: start: 20191121, end: 20191121
  12. 0.9% SODIUM CHLORIDE INJECTION [Suspect]
     Active Substance: SODIUM CHLORIDE
     Dosage: ONDANSETRON 2.2 MG + 0.9% NS 25 ML; 30 MINUTES BEFORE CHEMOTHERAPY
     Route: 042
     Dates: start: 20191121, end: 20191121
  13. ONDANSETRON [Suspect]
     Active Substance: ONDANSETRON
     Indication: PROPHYLAXIS OF NAUSEA AND VOMITING
     Dosage: ONDANSETRON 2.2 MG + 0.9% NS 25 ML; 30 MINUTES BEFORE CHEMOTHERAPY
     Route: 042
     Dates: start: 20191121, end: 20191121

REACTIONS (2)
  - White blood cell count decreased [Unknown]
  - Neutropenia [Unknown]

NARRATIVE: CASE EVENT DATE: 20191125
